FAERS Safety Report 4622705-X (Version None)
Quarter: 2005Q1

REPORT INFORMATION
  Report Type: 
  Country: None (occurrence: None)
  Receive Date: 20050329
  Receipt Date: 20050329
  Transmission Date: 20050727
  Serious: Yes (Life-Threatening, Hospitalization)
  Sender: FDA-Public Use
  Company Number: None

PATIENT
  Age: 16 Year
  Sex: Male
  Weight: 61.6892 kg

DRUGS (1)
  1. ADDERALL XR 10 [Suspect]
     Indication: ATTENTION DEFICIT/HYPERACTIVITY DISORDER
     Dosage: 1 TAB  DAILY   ORAL
     Route: 048
     Dates: start: 20050325, end: 20050326

REACTIONS (8)
  - COMA [None]
  - DEPRESSED LEVEL OF CONSCIOUSNESS [None]
  - DYSPNOEA [None]
  - HALLUCINATION [None]
  - RESPIRATORY ARREST [None]
  - SALIVARY HYPERSECRETION [None]
  - TOURETTE'S DISORDER [None]
  - UNRESPONSIVE TO VERBAL STIMULI [None]
